FAERS Safety Report 7959676-4 (Version None)
Quarter: 2011Q4

REPORT INFORMATION
  Report Type: 
  Country: None (occurrence: None)
  Receive Date: 20111206
  Receipt Date: 20111130
  Transmission Date: 20120403
  Serious: Yes (Other)
  Sender: FDA-Public Use
  Company Number: US-GLAXOSMITHKLINE-A0884665A

PATIENT
  Sex: Female
  Weight: 159.1 kg

DRUGS (2)
  1. AVANDARYL [Suspect]
     Indication: DIABETES MELLITUS
     Route: 048
  2. AVANDIA [Suspect]
     Indication: DIABETES MELLITUS
     Route: 048

REACTIONS (5)
  - ANGINA PECTORIS [None]
  - CHEST PAIN [None]
  - PARAESTHESIA [None]
  - DYSPNOEA [None]
  - CARDIOMEGALY [None]
